FAERS Safety Report 9536905 (Version 1)
Quarter: 2013Q3

REPORT INFORMATION
  Report Type: Spontaneous
  Country: FR (occurrence: FR)
  Receive Date: 20130919
  Receipt Date: 20130919
  Transmission Date: 20140515
  Serious: Yes (Hospitalization)
  Sender: FDA-Public Use
  Company Number: FR-009507513-1309FRA004001

PATIENT
  Age: 81 Year
  Sex: Female

DRUGS (5)
  1. SINEMET 100 MG / 10 MG COMPRIME SECABLE [Suspect]
     Dosage: UNK
     Route: 048
     Dates: start: 20130701, end: 20130709
  2. EBIXA [Concomitant]
  3. EUPANTOL [Concomitant]
  4. FRAGMINE [Concomitant]
  5. GAVISCON (ALGINIC ACID (+) ALUMINUM HYDROXIDE (+) MAGNESIUM TRISILICAT [Concomitant]

REACTIONS (5)
  - Eructation [Recovered/Resolved]
  - Vomiting [Recovered/Resolved]
  - Asthenia [Recovered/Resolved]
  - Decreased appetite [Recovered/Resolved]
  - Nausea [Recovered/Resolved]
